FAERS Safety Report 16432478 (Version 2)
Quarter: 2019Q3

REPORT INFORMATION
  Report Type: Spontaneous
  Country: US (occurrence: US)
  Receive Date: 20190614
  Receipt Date: 20190902
  Transmission Date: 20191004
  Serious: No
  Sender: FDA-Public Use
  Company Number: US-INCYTE CORPORATION-2019IN005687

PATIENT

DRUGS (2)
  1. JAKAFI [Suspect]
     Active Substance: RUXOLITINIB
     Dosage: 5 MILLIGRAM, QD
     Route: 048
     Dates: start: 20190516
  2. JAKAFI [Suspect]
     Active Substance: RUXOLITINIB
     Indication: MYELOFIBROSIS
     Dosage: 5 MILLIGRAM, BID
     Route: 048
     Dates: start: 20190516

REACTIONS (11)
  - Energy increased [Unknown]
  - Fatigue [Unknown]
  - Spleen disorder [Unknown]
  - Balance disorder [Unknown]
  - Productive cough [Unknown]
  - Sputum discoloured [Unknown]
  - Headache [Unknown]
  - Blood count abnormal [Unknown]
  - Skin atrophy [Unknown]
  - Oropharyngeal pain [Unknown]
  - Increased appetite [Unknown]
